FAERS Safety Report 20119516 (Version 1)
Quarter: 2021Q4

REPORT INFORMATION
  Report Type: Report from Study
  Country: BR (occurrence: BR)
  Receive Date: 20211126
  Receipt Date: 20211126
  Transmission Date: 20220304
  Serious: Yes (Other)
  Sender: FDA-Public Use
  Company Number: BR-NOVARTISPH-NVSC2021BR267751

PATIENT
  Age: 51 Year
  Sex: Female

DRUGS (3)
  1. ENTRESTO [Suspect]
     Active Substance: SACUBITRIL\VALSARTAN
     Indication: Blood pressure measurement
     Dosage: UNK (47/517)
     Route: 065
     Dates: start: 202008, end: 202009
  2. ENTRESTO [Suspect]
     Active Substance: SACUBITRIL\VALSARTAN
     Indication: Cardiac disorder
     Dosage: 200 MG (97/103 MG), BID
     Route: 065
     Dates: start: 202009
  3. VALSARTAN [Suspect]
     Active Substance: VALSARTAN
     Indication: Product used for unknown indication
     Dosage: UNK (320+10+5)
     Route: 065
     Dates: start: 2015

REACTIONS (7)
  - Angina pectoris [Unknown]
  - Effusion [Recovered/Resolved]
  - Pain [Unknown]
  - Paresis [Recovered/Resolved with Sequelae]
  - Malaise [Unknown]
  - Product prescribing error [Unknown]
  - Product use in unapproved indication [Unknown]

NARRATIVE: CASE EVENT DATE: 20200801
